FAERS Safety Report 16414035 (Version 6)
Quarter: 2025Q1

REPORT INFORMATION
  Report Type: Report from Study
  Country: GB (occurrence: GB)
  Receive Date: 20190611
  Receipt Date: 20250313
  Transmission Date: 20250409
  Serious: Yes (Death, Other)
  Sender: AUROBINDO
  Company Number: None

PATIENT
  Age: 24 Month
  Sex: Female

DRUGS (20)
  1. MELPHALAN [Suspect]
     Active Substance: MELPHALAN
     Indication: Immunosuppression
     Route: 065
  2. MELPHALAN [Suspect]
     Active Substance: MELPHALAN
     Indication: Bone marrow conditioning regimen
  3. MELPHALAN [Suspect]
     Active Substance: MELPHALAN
     Indication: Juvenile idiopathic arthritis
  4. ABATACEPT [Suspect]
     Active Substance: ABATACEPT
     Indication: Still^s disease
     Route: 065
  5. ADALIMUMAB [Suspect]
     Active Substance: ADALIMUMAB
     Indication: Still^s disease
     Route: 065
  6. ALEMTUZUMAB [Suspect]
     Active Substance: ALEMTUZUMAB
     Indication: Immunosuppression
     Dosage: 0.2 MILLIGRAM/KILOGRAM, ONCE A DAY  (DAYS 8-4)
     Route: 065
  7. ALEMTUZUMAB [Suspect]
     Active Substance: ALEMTUZUMAB
     Indication: Bone marrow conditioning regimen
  8. ALEMTUZUMAB [Suspect]
     Active Substance: ALEMTUZUMAB
     Indication: Juvenile idiopathic arthritis
  9. ANAKINRA [Suspect]
     Active Substance: ANAKINRA
     Indication: Still^s disease
     Route: 065
  10. CANAKINUMAB [Suspect]
     Active Substance: CANAKINUMAB
     Indication: Still^s disease
     Route: 065
  11. CYCLOSPORINE [Suspect]
     Active Substance: CYCLOSPORINE
     Indication: Still^s disease
     Route: 065
  12. ETANERCEPT [Suspect]
     Active Substance: ETANERCEPT
     Indication: Still^s disease
     Route: 065
  13. FLUDARABINE [Suspect]
     Active Substance: FLUDARABINE PHOSPHATE
     Indication: Immunosuppression
     Dosage: 30 MILLIGRAM/SQ. METER, ONCE A DAY (30 MG/M2, QD, DAYS 8 TO 4)
     Route: 065
  14. FLUDARABINE [Suspect]
     Active Substance: FLUDARABINE PHOSPHATE
     Indication: Bone marrow conditioning regimen
  15. FLUDARABINE [Suspect]
     Active Substance: FLUDARABINE PHOSPHATE
     Indication: Juvenile idiopathic arthritis
  16. METHOTREXATE [Suspect]
     Active Substance: METHOTREXATE
     Indication: Still^s disease
     Route: 065
  17. RITUXIMAB [Suspect]
     Active Substance: RITUXIMAB
     Indication: Still^s disease
     Route: 065
  18. THALIDOMIDE [Suspect]
     Active Substance: THALIDOMIDE
     Indication: Still^s disease
     Route: 065
  19. TOCILIZUMAB [Suspect]
     Active Substance: TOCILIZUMAB
     Indication: Still^s disease
     Route: 065
  20. TACROLIMUS [Suspect]
     Active Substance: TACROLIMUS
     Indication: Still^s disease
     Route: 065

REACTIONS (14)
  - Sepsis [Fatal]
  - BK virus infection [Unknown]
  - Osteoporosis [Unknown]
  - Encephalitis viral [Unknown]
  - Graft versus host disease [Unknown]
  - Herpes zoster [Unknown]
  - Viraemia [Unknown]
  - Polycystic ovarian syndrome [Unknown]
  - Epstein-Barr viraemia [Unknown]
  - Hepatic steatosis [Unknown]
  - Obesity [Unknown]
  - Glucose tolerance impaired [Unknown]
  - Off label use [Unknown]
  - Drug ineffective [Unknown]
